FAERS Safety Report 14324835 (Version 1)
Quarter: 2017Q4

REPORT INFORMATION
  Report Type: Other
  Country: DE (occurrence: DE)
  Receive Date: 20171226
  Receipt Date: 20171226
  Transmission Date: 20180321
  Serious: Yes (Other)
  Sender: FDA-Public Use
  Company Number: DE-GLENMARK PHARMACEUTICALS-2017GMK030234

PATIENT

DRUGS (2)
  1. MEROPENEM. [Interacting]
     Active Substance: MEROPENEM
     Indication: INFECTION
     Dosage: UNK
     Route: 065
  2. VORICONAZOLE. [Suspect]
     Active Substance: VORICONAZOLE
     Indication: INFECTION
     Dosage: UNK
     Route: 042

REACTIONS (2)
  - Drug level increased [Unknown]
  - Drug interaction [Unknown]
